FAERS Safety Report 12252627 (Version 1)
Quarter: 2016Q2

REPORT INFORMATION
  Report Type: Spontaneous
  Country: US (occurrence: US)
  Receive Date: 20160411
  Receipt Date: 20160411
  Transmission Date: 20160815
  Serious: No
  Sender: FDA-Public Use
  Company Number: US-ACTAVIS-2015-22196

PATIENT
  Sex: Female

DRUGS (3)
  1. OXYCODONE (WATSON LABORATORIES) [Suspect]
     Active Substance: OXYCODONE
     Indication: PAIN
     Dosage: 5 MG, EVERY 4 HOURS, AS NEEDED
     Route: 048
     Dates: start: 20150515
  2. IBUPROFEN (AMALLC) [Suspect]
     Active Substance: IBUPROFEN
     Indication: PRODUCT USED FOR UNKNOWN INDICATION
     Dosage: UNK, UNKNOWN
     Route: 065
  3. ASPIRIN. [Suspect]
     Active Substance: ASPIRIN
     Indication: PRODUCT USED FOR UNKNOWN INDICATION
     Dosage: UNK, UNKNOWN
     Route: 065

REACTIONS (2)
  - Swelling [Recovered/Resolved]
  - Pharyngeal oedema [Unknown]
